FAERS Safety Report 4963127-1 (Version None)
Quarter: 2006Q2

REPORT INFORMATION
  Report Type: 
  Country: None (occurrence: None)
  Receive Date: 20060405
  Receipt Date: 20060326
  Transmission Date: 20061013
  Serious: Yes (Other)
  Sender: FDA-Public Use
  Company Number: BR-ROCHE-442306

PATIENT
  Sex: Female
  Weight: 52 kg

DRUGS (5)
  1. RIVOTRIL [Suspect]
     Indication: PANIC DISORDER
     Route: 048
     Dates: start: 19980615
  2. RIVOTRIL [Suspect]
     Route: 048
  3. RIVOTRIL [Suspect]
     Route: 048
  4. RIVOTRIL [Suspect]
     Route: 048
     Dates: start: 20060215
  5. UNSPECIFIED DRUG [Concomitant]
     Indication: DEPRESSION
     Route: 048

REACTIONS (6)
  - AGORAPHOBIA [None]
  - ANXIETY [None]
  - BIPOLAR DISORDER [None]
  - DRUG WITHDRAWAL SYNDROME [None]
  - HEADACHE [None]
  - IRRITABILITY [None]
